FAERS Safety Report 14901178 (Version 2)
Quarter: 2018Q2

REPORT INFORMATION
  Report Type: Report from Study
  Country: US (occurrence: US)
  Receive Date: 20180516
  Receipt Date: 20180613
  Transmission Date: 20180711
  Serious: Yes (Other)
  Sender: FDA-Public Use
  Company Number: US-ROCHE-2119501

PATIENT
  Sex: Female

DRUGS (1)
  1. OCREVUS [Suspect]
     Active Substance: OCRELIZUMAB
     Indication: MULTIPLE SCLEROSIS
     Dosage: IT WAS REPORTED THAT SHE RECEIVED HER MOST RECENT INFUSION ON 18/MAY/2018
     Route: 065

REACTIONS (2)
  - Drug effect decreased [Unknown]
  - Multiple sclerosis relapse [Unknown]
